FAERS Safety Report 19568818 (Version 4)
Quarter: 2021Q3

REPORT INFORMATION
  Report Type: Report from Study
  Country: PL (occurrence: PL)
  Receive Date: 20210715
  Receipt Date: 20210805
  Transmission Date: 20211014
  Serious: Yes (Hospitalization)
  Sender: FDA-Public Use
  Company Number: PL-ROCHE-2868633

PATIENT
  Age: 62 Year
  Sex: Male
  Weight: 79.5 kg

DRUGS (15)
  1. ATEZOLIZUMAB. [Suspect]
     Active Substance: ATEZOLIZUMAB
     Indication: RENAL CELL CARCINOMA
     Dosage: ON 29/JUN/2021, HE RECEIVED MOST RECENT DOSE OF IV ATEZOLIZUMAB PRIOR TO SAE ONSET
     Route: 042
     Dates: start: 20210607
  2. CLEXANE [Concomitant]
     Active Substance: ENOXAPARIN SODIUM
     Indication: GASTROINTESTINAL HAEMORRHAGE
     Route: 058
     Dates: start: 20210712
  3. BISOCARD [Concomitant]
     Active Substance: BISOPROLOL
     Indication: GASTROINTESTINAL HAEMORRHAGE
     Route: 048
     Dates: start: 20210712
  4. TRIBUX FORTE [Concomitant]
     Route: 048
     Dates: start: 20210716
  5. CEFTRIAXONUM [Concomitant]
     Indication: PULMONARY EMBOLISM
     Dates: start: 202107
  6. INDAPEN SR [Concomitant]
     Active Substance: INDAPAMIDE
     Indication: GASTROINTESTINAL HAEMORRHAGE
     Route: 048
     Dates: start: 20210712
  7. CYCLONAMINE [Concomitant]
     Active Substance: ETHAMSYLATE
     Indication: GASTROINTESTINAL HAEMORRHAGE
     Dosage: 6 AMPULE
     Route: 042
     Dates: start: 202107, end: 202107
  8. MESOPRAL [Concomitant]
     Route: 048
     Dates: start: 20210716
  9. PRESTARIUM [Concomitant]
     Active Substance: PERINDOPRIL
     Indication: GASTROINTESTINAL HAEMORRHAGE
     Route: 048
     Dates: start: 20210712
  10. XIFAXAN [Concomitant]
     Active Substance: RIFAXIMIN
     Route: 048
     Dates: start: 20210716
  11. NEBIVOLOLUM [Concomitant]
     Active Substance: NEBIVOLOL
     Indication: HYPERTENSION
     Route: 048
     Dates: start: 2018
  12. RAMIPRILUM [Concomitant]
     Indication: HYPERTENSION
     Route: 048
     Dates: start: 2018
  13. LOW?MOLECULAR?WEIGHT HEPARIN CALCIUM [Concomitant]
     Active Substance: HEPARIN CALCIUM
     Indication: PULMONARY EMBOLISM
     Dates: start: 202107
  14. HELICID [OMEPRAZOLE] [Concomitant]
     Active Substance: OMEPRAZOLE
     Indication: GASTROINTESTINAL HAEMORRHAGE
     Dates: start: 202107, end: 202107
  15. CABOZANTINIB [Suspect]
     Active Substance: CABOZANTINIB
     Indication: RENAL CELL CARCINOMA
     Dosage: START DATE OF MOST RECENT DOSE OF STUDY DRUG PRIOR TO AE WAS ON 03/JUL/2021
     Route: 048
     Dates: start: 20210607

REACTIONS (2)
  - Pulmonary embolism [Not Recovered/Not Resolved]
  - Gastrointestinal haemorrhage [Recovered/Resolved]

NARRATIVE: CASE EVENT DATE: 20210702
